FAERS Safety Report 23249858 (Version 1)
Quarter: 2023Q4

REPORT INFORMATION
  Report Type: Spontaneous
  Country: US (occurrence: US)
  Receive Date: 20231201
  Receipt Date: 20231201
  Transmission Date: 20240109
  Serious: No
  Sender: FDA-Public Use
  Company Number: US-ALVOGEN-2023091903

PATIENT
  Age: 48 Year
  Sex: Male

DRUGS (2)
  1. LEVOTHYROXINE [Suspect]
     Active Substance: LEVOTHYROXINE
     Indication: Thyroid hormone replacement therapy
     Dates: start: 2021, end: 202209
  2. LEVOTHYROXINE [Suspect]
     Active Substance: LEVOTHYROXINE
     Indication: Thyroid hormone replacement therapy
     Dosage: EXPIRATION DATE: 07-MAR-2023
     Dates: start: 202212, end: 20230315

REACTIONS (7)
  - Blood triglycerides increased [Unknown]
  - Chest pain [Unknown]
  - Tachycardia [Unknown]
  - Anxiety [Unknown]
  - Hypertension [Unknown]
  - Palpitations [Not Recovered/Not Resolved]
  - Expired product administered [Unknown]

NARRATIVE: CASE EVENT DATE: 20211101
